FAERS Safety Report 5484479-2 (Version None)
Quarter: 2007Q4

REPORT INFORMATION
  Report Type: 
  Country: None (occurrence: None)
  Receive Date: 20071010
  Receipt Date: 20070927
  Transmission Date: 20080405
  Serious: No
  Sender: FDA-Public Use
  Company Number: US021343

PATIENT

DRUGS (2)
  1. FENTORA [Suspect]
     Indication: PAIN
     Dosage: 200 UG BID BUCCAL
     Route: 002
  2. METHADONE HCL [Concomitant]

REACTIONS (1)
  - MEDICATION ERROR [None]
